FAERS Safety Report 17068269 (Version 1)
Quarter: 2019Q4

REPORT INFORMATION
  Report Type: Spontaneous
  Country: DE (occurrence: DE)
  Receive Date: 20191123
  Receipt Date: 20191123
  Transmission Date: 20200122
  Serious: Yes (Other)
  Sender: FDA-Public Use
  Company Number: DE-DRREDDYS-GER/GER/19/0116144

PATIENT
  Age: 1 Day
  Sex: Male
  Weight: 3.8 kg

DRUGS (6)
  1. FOLSAEURE [Concomitant]
     Active Substance: FOLIC ACID
     Indication: PRODUCT USED FOR UNKNOWN INDICATION
     Route: 064
  2. VENLAFAXINE [Suspect]
     Active Substance: VENLAFAXINE HYDROCHLORIDE
     Indication: PRODUCT USED FOR UNKNOWN INDICATION
     Dosage: 225 [MG/D ]
     Route: 064
     Dates: start: 20180703, end: 20190323
  3. QUILONUM RETARD [Suspect]
     Active Substance: LITHIUM CARBONATE
     Indication: PRODUCT USED FOR UNKNOWN INDICATION
     Dosage: 1350 [MG/D (675- 0- 675) ] 2 SEPARATED DOSES
     Route: 064
     Dates: start: 20180703, end: 20190323
  4. FRAGMIN [Concomitant]
     Active Substance: DALTEPARIN SODIUM
     Indication: PRODUCT USED FOR UNKNOWN INDICATION
     Dosage: 5000 [I.E./D ]
     Route: 064
     Dates: start: 20180703, end: 20190305
  5. INSULIN BASAL [Concomitant]
     Active Substance: INSULIN NOS
     Indication: PRODUCT USED FOR UNKNOWN INDICATION
     Dosage: 14 [I.E./D (5-3-6) ]
     Route: 064
  6. THYROXIN [Concomitant]
     Active Substance: LEVOTHYROXINE
     Indication: PRODUCT USED FOR UNKNOWN INDICATION
     Dosage: 75 [MICROG/D ]
     Route: 064
     Dates: start: 20180703, end: 20190305

REACTIONS (4)
  - Floppy infant [Recovered/Resolved]
  - Respiratory disorder neonatal [Recovered/Resolved]
  - Hypotonia neonatal [Recovered/Resolved]
  - Foetal exposure during pregnancy [Unknown]

NARRATIVE: CASE EVENT DATE: 20190323
